FAERS Safety Report 25606309 (Version 2)
Quarter: 2025Q3

REPORT INFORMATION
  Report Type: Report from Study
  Country: US (occurrence: US)
  Receive Date: 20250725
  Receipt Date: 20250915
  Transmission Date: 20251021
  Serious: No
  Sender: SUNOVION
  Company Number: US-SUMITOMO PHARMA SWITZERLAND GMBH-2025SPA009023

PATIENT
  Age: 75 Year
  Sex: Male

DRUGS (17)
  1. ORGOVYX [Suspect]
     Active Substance: RELUGOLIX
     Indication: Prostate cancer
     Route: 048
  2. ORGOVYX [Suspect]
     Active Substance: RELUGOLIX
     Route: 048
  3. ACETAMINOPHEN AND CODEINE [Concomitant]
     Active Substance: ACETAMINOPHEN\CODEINE PHOSPHATE
  4. ANTACID PLUS [Concomitant]
     Active Substance: ALUMINUM HYDROXIDE\DIMETHICONE\MAGNESIUM HYDROXIDE
  5. BICALUTAMIDE [Concomitant]
     Active Substance: BICALUTAMIDE
  6. CEFTRIAXONE [Concomitant]
     Active Substance: CEFTRIAXONE
  7. ESOMEPRAZOLE [Concomitant]
     Active Substance: ESOMEPRAZOLE
  8. GENTAMICIN [Concomitant]
     Active Substance: GENTAMICIN
  9. HYDROCODONE BITARTRATE AND ACETAMINOPHEN [Concomitant]
     Active Substance: ACETAMINOPHEN\HYDROCODONE BITARTRATE
  10. LOPERAMIDE [Concomitant]
     Active Substance: LOPERAMIDE
  11. OMEPRAZOLE [Concomitant]
     Active Substance: OMEPRAZOLE
  12. PANTOPRAZOLE [Concomitant]
     Active Substance: PANTOPRAZOLE
  13. SUCRALFATE [Concomitant]
     Active Substance: SUCRALFATE
  14. TAMSULOSIN [Concomitant]
     Active Substance: TAMSULOSIN
  15. TERAZOSIN [Concomitant]
     Active Substance: TERAZOSIN HYDROCHLORIDE
  16. TYLENOL [Concomitant]
     Active Substance: ACETAMINOPHEN
  17. NUBEQA [Concomitant]
     Active Substance: DAROLUTAMIDE

REACTIONS (3)
  - Dizziness postural [Unknown]
  - Irritability [Unknown]
  - Fatigue [Unknown]
